FAERS Safety Report 5680428-2 (Version None)
Quarter: 2008Q1

REPORT INFORMATION
  Report Type: 
  Country: None (occurrence: None)
  Receive Date: 20080326
  Receipt Date: 20080313
  Transmission Date: 20080703
  Serious: Yes (Congenital Anomaly)
  Sender: FDA-Public Use
  Company Number: A0681912A

PATIENT
  Sex: Female
  Weight: 3.8 kg

DRUGS (5)
  1. PAXIL [Suspect]
     Indication: ANXIETY
     Dosage: 20MG PER DAY
  2. PAXIL CR [Suspect]
     Indication: ANXIETY
     Dosage: 20MG PER DAY
     Dates: start: 20020701
  3. VITAMIN TAB [Concomitant]
  4. ANTIBIOTICS [Concomitant]
     Dates: start: 20060101
  5. VALIUM [Concomitant]
     Dates: start: 20060201

REACTIONS (8)
  - ATRIAL SEPTAL DEFECT [None]
  - CARDIAC MURMUR [None]
  - CARDIOMEGALY [None]
  - DILATATION ATRIAL [None]
  - DRUG EXPOSURE DURING PREGNANCY [None]
  - DYSPNOEA [None]
  - SINUS TACHYCARDIA [None]
  - VENTRICULAR SEPTAL DEFECT [None]
